FAERS Safety Report 20306433 (Version 2)
Quarter: 2022Q1

REPORT INFORMATION
  Report Type: Report from Study
  Country: US (occurrence: US)
  Receive Date: 20220106
  Receipt Date: 20220114
  Transmission Date: 20220423
  Serious: Yes (Hospitalization)
  Sender: FDA-Public Use
  Company Number: US-REGENERON PHARMACEUTICALS, INC.-2021-122449

PATIENT
  Age: 54 Year
  Sex: Male

DRUGS (2)
  1. CASIRIVIMAB\IMDEVIMAB [Suspect]
     Active Substance: CASIRIVIMAB\IMDEVIMAB
     Indication: COVID-19
     Dosage: 600 MG, SINGLE
     Route: 042
     Dates: start: 20211217, end: 20211217
  2. ALBUTEROL [Concomitant]
     Active Substance: ALBUTEROL
     Indication: Product used for unknown indication
     Dosage: UNK
     Route: 065
     Dates: start: 20211213

REACTIONS (9)
  - Cough [Recovering/Resolving]
  - Nasal congestion [Recovering/Resolving]
  - Dyspnoea [Recovering/Resolving]
  - Myalgia [Recovering/Resolving]
  - Diarrhoea [Recovering/Resolving]
  - Oxygen saturation decreased [Recovering/Resolving]
  - Hypoxia [Recovering/Resolving]
  - Lung infiltration [Recovering/Resolving]
  - Incorrect dose administered [Unknown]

NARRATIVE: CASE EVENT DATE: 20211217
